FAERS Safety Report 6335226-3 (Version None)
Quarter: 2009Q3

REPORT INFORMATION
  Report Type: 
  Country: None (occurrence: None)
  Receive Date: 20090831
  Receipt Date: 20090826
  Transmission Date: 20100115
  Serious: Yes (Hospitalization)
  Sender: FDA-Public Use
  Company Number: JP-SANOFI-SYNTHELABO-D01200904724

PATIENT
  Sex: Female
  Weight: 42.5 kg

DRUGS (12)
  1. 2 DAYS PLACEBO FOLLOWED BY CLOPIDOGREL VS TICLOPIDINE [Suspect]
     Indication: ANGINA PECTORIS
     Dosage: 2 DAYS PLACEBO FOLLOWED BY LOADING DOSE 300MG FOLLOWED BY 75MG DAILY
     Route: 048
     Dates: start: 20081212, end: 20090305
  2. 2 DAYS PLACEBO FOLLOWED BY CLOPIDOGREL VS TICLOPIDINE [Suspect]
     Indication: MYOCARDIAL INFARCTION
     Dosage: 2 DAYS PLACEBO FOLLOWED BY LOADING DOSE 300MG FOLLOWED BY 75MG DAILY
     Route: 048
     Dates: start: 20081212, end: 20090305
  3. 2 DAYS PLACEBO FOLLOWED BY CLOPIDOGREL VS TICLOPIDINE [Suspect]
     Route: 048
  4. 2 DAYS PLACEBO FOLLOWED BY CLOPIDOGREL VS TICLOPIDINE [Suspect]
     Route: 048
  5. CLOPIDOGREL [Suspect]
     Indication: ANGINA PECTORIS
     Dosage: 75 MG
     Route: 048
     Dates: start: 20090306, end: 20090731
  6. CLOPIDOGREL [Suspect]
     Indication: MYOCARDIAL INFARCTION
     Dosage: 75 MG
     Route: 048
     Dates: start: 20090306, end: 20090731
  7. AMLODIPINE [Concomitant]
     Indication: HYPERTENSION
     Dosage: 5 MG
     Route: 048
     Dates: start: 20080611
  8. PARIET [Concomitant]
     Indication: GASTRIC ULCER
     Dosage: 10 MG
     Route: 048
     Dates: start: 20090626, end: 20090731
  9. NITOROL [Concomitant]
     Indication: HYPERTENSION
     Dosage: 20 MG
     Route: 048
     Dates: start: 20081125, end: 20090731
  10. MICARDIS [Concomitant]
     Indication: HYPERTENSION
     Dosage: 20 MG
     Route: 048
     Dates: start: 20080611
  11. YODEL [Concomitant]
     Indication: CONSTIPATION
     Dosage: 80 MG
     Route: 048
     Dates: start: 20071204, end: 20090731
  12. ASPIRIN [Concomitant]
     Dosage: 100 MG
     Route: 048
     Dates: start: 20081202

REACTIONS (1)
  - MULTIPLE MYELOMA [None]
